FAERS Safety Report 14876589 (Version 3)
Quarter: 2018Q4

REPORT INFORMATION
  Report Type: Spontaneous
  Country: CZ (occurrence: CZ)
  Receive Date: 20180510
  Receipt Date: 20181212
  Transmission Date: 20190204
  Serious: Yes (Hospitalization, Other)
  Sender: FDA-Public Use
  Company Number: CZ-NAPPMUNDI-GBR-2018-0055643

PATIENT
  Age: 83 Year
  Sex: Female
  Weight: 61 kg

DRUGS (32)
  1. AMLODIPINE [Suspect]
     Active Substance: AMLODIPINE BESYLATE
     Dosage: 5 MG,UNK
     Route: 065
  2. AMLODIPINE [Suspect]
     Active Substance: AMLODIPINE BESYLATE
     Dosage: 10 MG,UNK
     Route: 065
  3. NOLPAZA [Concomitant]
     Active Substance: PANTOPRAZOLE SODIUM
     Dosage: 20 MG,QD
     Route: 065
  4. CALCICHEW D3 [Concomitant]
     Active Substance: CALCIUM\CHOLECALCIFEROL
     Dosage: 1 DF,QD
     Route: 065
     Dates: start: 20171127
  5. GODASAL [Concomitant]
     Active Substance: ASPIRIN\GLYCINE
     Dosage: 50 MG, DAILY
     Route: 065
  6. GODASAL [Concomitant]
     Active Substance: ASPIRIN\GLYCINE
     Dosage: 100 MG, UNK
  7. GODASAL [Concomitant]
     Active Substance: ASPIRIN\GLYCINE
     Dosage: 100 MG,QD
     Route: 065
  8. WARFARIN [Concomitant]
     Active Substance: WARFARIN
     Indication: ARTERIAL THROMBOSIS
     Dosage: 3 MG, DAILY
     Route: 065
  9. WARFARIN [Concomitant]
     Active Substance: WARFARIN
     Indication: PERIPHERAL ARTERY THROMBOSIS
     Dosage: UNK UNK,UNK
     Route: 065
  10. APO-PANTOPRAZOLE [Concomitant]
     Active Substance: PANTOPRAZOLE SODIUM
     Dosage: 40 MG, DAILY
  11. APO-PANTOPRAZOLE [Concomitant]
     Active Substance: PANTOPRAZOLE SODIUM
     Dosage: 40 MG,QD
     Route: 065
  12. RAMIPRIL. [Concomitant]
     Active Substance: RAMIPRIL
     Dosage: UNK
  13. NOLPAZA [Concomitant]
     Active Substance: PANTOPRAZOLE SODIUM
     Dosage: 20 MG, DAILY
     Route: 065
  14. RILMENIDINE [Concomitant]
     Active Substance: RILMENIDINE
     Dosage: DAILY
  15. AMOXICILLIN CLAVULANIC ACID [Concomitant]
     Active Substance: AMOXICILLIN\CLAVULANIC ACID
     Dosage: UNK
  16. ITOPRIDE [Concomitant]
     Active Substance: ITOPRIDE
     Dosage: 1 DF,BID
     Route: 065
  17. OXYCODONE HYDROCHLORIDE. [Suspect]
     Active Substance: OXYCODONE HYDROCHLORIDE
     Indication: PRODUCT USED FOR UNKNOWN INDICATION
     Dosage: 60 MG
     Route: 048
  18. TRITACE [Suspect]
     Active Substance: RAMIPRIL
     Indication: HYPERTENSION
     Route: 048
  19. AMLODIPINE [Suspect]
     Active Substance: AMLODIPINE BESYLATE
     Indication: PRODUCT USED FOR UNKNOWN INDICATION
     Dosage: 5 MG, UNK
     Route: 048
     Dates: start: 201711, end: 201712
  20. AMLODIPINE [Suspect]
     Active Substance: AMLODIPINE BESYLATE
     Indication: PRODUCT USED FOR UNKNOWN INDICATION
     Dosage: 5MG
     Route: 048
  21. PERINDOPRIL [Suspect]
     Active Substance: PERINDOPRIL
     Indication: PRODUCT USED FOR UNKNOWN INDICATION
     Route: 048
  22. AMLODIPINE [Suspect]
     Active Substance: AMLODIPINE BESYLATE
     Dosage: 2.5 MG,UNK
     Route: 065
  23. NOLPAZA [Concomitant]
     Active Substance: PANTOPRAZOLE SODIUM
     Dosage: 20 MG, UNK
  24. CALCICHEW D3 [Concomitant]
     Active Substance: CALCIUM\CHOLECALCIFEROL
     Dosage: UNK, DAILY
     Route: 065
     Dates: start: 20171127
  25. HYDROCHLOROTHIAZIDE. [Suspect]
     Active Substance: HYDROCHLOROTHIAZIDE
     Indication: HYPERTENSION
     Dosage: .5 DF,QD
     Route: 048
  26. TRITACE [Suspect]
     Active Substance: RAMIPRIL
     Dosage: 1 DF,QD
     Route: 065
  27. AMLODIPINE [Suspect]
     Active Substance: AMLODIPINE BESYLATE
     Dosage: 5 MG,QD
     Route: 065
  28. NADROPARIN [Suspect]
     Active Substance: NADROPARIN
     Indication: PRODUCT USED FOR UNKNOWN INDICATION
     Route: 065
  29. VASOCARDIN [Concomitant]
     Active Substance: METOPROLOL
     Dosage: 100 MG, DAILY
     Route: 065
  30. CITALOPRAM [Concomitant]
     Active Substance: CITALOPRAM HYDROBROMIDE
     Dosage: 10 MG, DAILY
     Route: 065
  31. WARFARIN [Concomitant]
     Active Substance: WARFARIN
     Indication: PULMONARY EMBOLISM
     Dosage: 5 MG, UNK
     Dates: start: 2015, end: 201712
  32. OXYCONTIN [Concomitant]
     Active Substance: OXYCODONE HYDROCHLORIDE
     Indication: PAIN
     Dosage: 60 MG, BID
     Route: 065
     Dates: start: 201711

REACTIONS (8)
  - Overdose [Unknown]
  - Hypertension [Recovering/Resolving]
  - Somnolence [Unknown]
  - Hypotension [Unknown]
  - Hypovolaemia [Unknown]
  - Confusional state [Unknown]
  - Hyponatraemia [Recovering/Resolving]
  - Constipation [Unknown]

NARRATIVE: CASE EVENT DATE: 20171227
